FAERS Safety Report 8054352-4 (Version None)
Quarter: 2012Q1

REPORT INFORMATION
  Report Type: 
  Country: None (occurrence: None)
  Receive Date: 20120118
  Receipt Date: 20120113
  Transmission Date: 20120608
  Serious: Yes (Other)
  Sender: FDA-Public Use
  Company Number: PHEH2012US000919

PATIENT
  Sex: Female

DRUGS (4)
  1. TIZANIDINE HCL [Concomitant]
     Indication: PAIN
     Dosage: 2 MG, UNK
     Dates: start: 20101016
  2. IMITREX [Concomitant]
     Indication: MIGRAINE
     Dosage: 100 MG, UNK
     Dates: start: 20081010
  3. GILENYA [Suspect]
     Indication: RELAPSING-REMITTING MULTIPLE SCLEROSIS
     Dosage: 0.5 MG, DAILY
     Route: 048
     Dates: start: 20111214
  4. GABAPENTIN [Concomitant]
     Indication: PAIN
     Dosage: 300 MG, TID
     Route: 048
     Dates: start: 20091118

REACTIONS (4)
  - EYE PAIN [None]
  - OPTIC NEURITIS [None]
  - VISUAL ACUITY REDUCED [None]
  - VISION BLURRED [None]
